FAERS Safety Report 4814187-X (Version None)
Quarter: 2005Q4

REPORT INFORMATION
  Report Type: 
  Country: None (occurrence: None)
  Receive Date: 20051028
  Receipt Date: 20050714
  Transmission Date: 20060501
  Serious: No
  Sender: FDA-Public Use
  Company Number: US-GLAXOSMITHKLINE-A0566509A

PATIENT
  Age: 51 Year
  Sex: Female

DRUGS (6)
  1. ADVAIR DISKUS 100/50 [Suspect]
     Indication: ASTHMA
     Dosage: 1PUFF TWICE PER DAY
     Route: 055
  2. BREMIDE [Concomitant]
     Route: 065
  3. FLONASE [Concomitant]
     Route: 045
  4. PROTONIX [Concomitant]
     Route: 065
  5. DARVOCET-N 100 [Concomitant]
     Route: 065
  6. PATANOL [Concomitant]
     Route: 065

REACTIONS (3)
  - DRY MOUTH [None]
  - DYSPNOEA [None]
  - PHARMACEUTICAL PRODUCT COMPLAINT [None]
